FAERS Safety Report 5010193-3 (Version None)
Quarter: 2006Q2

REPORT INFORMATION
  Report Type: 
  Country: None (occurrence: None)
  Receive Date: 20060524
  Receipt Date: 20060517
  Transmission Date: 20061013
  Serious: Yes (Hospitalization)
  Sender: FDA-Public Use
  Company Number: FR-ABBOTT-06P-056-0333537-00

PATIENT
  Age: 22 Year
  Sex: Female

DRUGS (8)
  1. ZECLAR [Suspect]
     Indication: DRUG USE FOR UNKNOWN INDICATION
     Route: 048
     Dates: start: 20060407
  2. ACETYLSALICYLIC ACID SRT [Suspect]
     Indication: DRUG USE FOR UNKNOWN INDICATION
     Route: 048
     Dates: start: 20060407, end: 20060412
  3. OESTRADIOL [Suspect]
     Indication: OVARIAN FAILURE
     Route: 061
     Dates: start: 20060401
  4. OESTRADIOL [Suspect]
     Indication: PREMATURE MENOPAUSE
  5. PROGESTERONE [Suspect]
     Indication: OVARIAN FAILURE
     Route: 048
     Dates: start: 20060401
  6. PROGESTERONE [Suspect]
     Indication: PREMATURE MENOPAUSE
  7. VALACYCLOVIR HCL [Suspect]
     Indication: DRUG USE FOR UNKNOWN INDICATION
     Route: 048
  8. PHENOZYMETHYLPENICILLINE [Suspect]
     Indication: DRUG USE FOR UNKNOWN INDICATION
     Route: 048

REACTIONS (1)
  - PAIN IN EXTREMITY [None]
